FAERS Safety Report 14718851 (Version 1)
Quarter: 2018Q2

REPORT INFORMATION
  Report Type: Spontaneous
  Country: FR (occurrence: FR)
  Receive Date: 20180405
  Receipt Date: 20180405
  Transmission Date: 20180711
  Serious: Yes (Death)
  Sender: FDA-Public Use
  Company Number: FR-TEVA-2018-FR-878849

PATIENT
  Age: 65 Year
  Sex: Female
  Weight: 48.8 kg

DRUGS (3)
  1. DUROGESIC [Concomitant]
     Active Substance: FENTANYL
     Route: 062
  2. GEMCITABINE [Suspect]
     Active Substance: GEMCITABINE\GEMCITABINE HYDROCHLORIDE
     Indication: BREAST CANCER
     Route: 042
  3. INEXIUM 40 MG, COMPRIM? GASTRO-R?SISTANT [Concomitant]
     Active Substance: ESOMEPRAZOLE
     Dosage: 1 DOSAGE FORMS DAILY;
     Route: 048

REACTIONS (2)
  - Bone marrow failure [Fatal]
  - Septic shock [Fatal]
